FAERS Safety Report 9360722 (Version 1)
Quarter: 2013Q2

REPORT INFORMATION
  Report Type: Spontaneous
  Country: IT (occurrence: None)
  Receive Date: 20130618
  Receipt Date: 20130618
  Transmission Date: 20140414
  Serious: Yes (Other)
  Sender: FDA-Public Use
  Company Number: AXC-2013-000263

PATIENT
  Age: 71 Year
  Sex: Female

DRUGS (6)
  1. NITROGLYCERIN (NITROGLYCERIN) UNKNOWN [Suspect]
     Indication: PRODUCT USED FOR UNKNOWN INDICATION
     Route: 062
     Dates: start: 20120311, end: 20130310
  2. CARVASIN [Suspect]
     Indication: PRODUCT USED FOR UNKNOWN INDICATION
     Dosage: 1 DF, SINGLE, SUBLINGUAL
     Route: 060
     Dates: start: 20130310, end: 20130310
  3. METOPROLOL TARTRATE [Suspect]
     Indication: PRODUCT USED FOR UNKNOWN INDICATION
     Route: 048
     Dates: start: 20120311, end: 20130310
  4. DUOPLAVIN [Suspect]
  5. PANTOPRAZOLE SODIUM [Suspect]
  6. ATORVASTATIN [Suspect]

REACTIONS (1)
  - Syncope [None]
